FAERS Safety Report 9159511 (Version 1)
Quarter: 2013Q1

REPORT INFORMATION
  Report Type: Spontaneous
  Country: US (occurrence: US)
  Receive Date: 20130313
  Receipt Date: 20130313
  Transmission Date: 20140127
  Serious: Yes (Death)
  Sender: FDA-Public Use
  Company Number: PHEH2013US005741

PATIENT
  Age: 92 Year
  Sex: Male

DRUGS (8)
  1. GLEEVEC [Suspect]
     Dosage: 100 MG, BID
     Route: 048
  2. LOTREL [Concomitant]
     Dosage: 10-20 MG, UNK
  3. DIOVAN [Concomitant]
     Dosage: 160 MG, UNK
  4. PLAVIX [Concomitant]
     Dosage: 75 MG, UNK
  5. ASPIRIN LOW [Concomitant]
     Dosage: 81 MG, UNK
  6. OS-CAL 500 + D [Concomitant]
     Dosage: UNK UKN, UNK
  7. CENTRUM SILVER [Concomitant]
     Dosage: UNK UKN, UNK
  8. SIMVASTATIN [Concomitant]
     Dosage: 10 MG, UNK

REACTIONS (1)
  - Death [Fatal]
